FAERS Safety Report 8249494-4 (Version None)
Quarter: 2012Q1

REPORT INFORMATION
  Report Type: 
  Country: None (occurrence: None)
  Receive Date: 20120316
  Receipt Date: 20101004
  Transmission Date: 20120608
  Serious: Yes (Hospitalization)
  Sender: FDA-Public Use
  Company Number: PHHY2010US66413

PATIENT
  Age: 66 Year
  Sex: Female
  Weight: 122 kg

DRUGS (5)
  1. EXFORGE [Concomitant]
  2. DIGOXIN [Concomitant]
  3. COREG [Concomitant]
  4. TEKTURNA [Suspect]
     Indication: HYPERTENSION
     Dosage: 300 MG, QD, ORAL
     Route: 048
     Dates: start: 20091208, end: 20100919
  5. ASPIRIN [Concomitant]

REACTIONS (6)
  - DYSPHAGIA [None]
  - PHARYNGEAL OEDEMA [None]
  - ANGIOEDEMA [None]
  - OEDEMA MOUTH [None]
  - DYSPNOEA [None]
  - SWOLLEN TONGUE [None]
